FAERS Safety Report 13497402 (Version 1)
Quarter: 2017Q2

REPORT INFORMATION
  Report Type: Spontaneous
  Country: US (occurrence: US)
  Receive Date: 20170428
  Receipt Date: 20170428
  Transmission Date: 20170830
  Serious: No
  Sender: FDA-Public Use
  Company Number: None

PATIENT
  Age: 11 Year
  Sex: Female

DRUGS (7)
  1. CENTRUM KIDS [Concomitant]
  2. COLISTIMETH [Concomitant]
  3. RAPAMUNE [Concomitant]
     Active Substance: SIROLIMUS
  4. PREDNISONE. [Concomitant]
     Active Substance: PREDNISONE
  5. ACTIMMUNE [Suspect]
     Active Substance: INTERFERON GAMMA-1B
     Indication: RESPIRATORY DISORDER
     Dosage: 0.25ML TUES, THURS, SAT SQ
     Route: 058
     Dates: start: 20130502
  6. TOBI PODHALER [Suspect]
     Active Substance: TOBRAMYCIN
     Indication: RESPIRATORY DISORDER
     Route: 055
     Dates: start: 20131119
  7. PULMOZYME [Concomitant]
     Active Substance: DORNASE ALFA

REACTIONS (1)
  - Hospitalisation [None]

NARRATIVE: CASE EVENT DATE: 20170221
